FAERS Safety Report 18630984 (Version 1)
Quarter: 2020Q4

REPORT INFORMATION
  Report Type: Spontaneous
  Country: US (occurrence: US)
  Receive Date: 20201217
  Receipt Date: 20201217
  Transmission Date: 20210114
  Serious: No
  Sender: FDA-Public Use
  Company Number: US-ROCHE-2670665

PATIENT
  Age: 6 Year
  Sex: Female
  Weight: 32.7 kg

DRUGS (1)
  1. XOFLUZA [Suspect]
     Active Substance: BALOXAVIR MARBOXIL
     Indication: PRODUCT USED FOR UNKNOWN INDICATION
     Route: 065

REACTIONS (4)
  - Stomatitis [Unknown]
  - Off label use [Unknown]
  - Intentional product use issue [Unknown]
  - Medication error [Unknown]
